FAERS Safety Report 25378426 (Version 1)
Quarter: 2025Q2

REPORT INFORMATION
  Report Type: Spontaneous
  Country: PL (occurrence: PL)
  Receive Date: 20250530
  Receipt Date: 20250530
  Transmission Date: 20250716
  Serious: Yes (Hospitalization)
  Sender: DAIICHI
  Company Number: None

PATIENT
  Age: 48 Year
  Sex: Female
  Weight: 63.2 kg

DRUGS (1)
  1. ENHERTU [Suspect]
     Active Substance: FAM-TRASTUZUMAB DERUXTECAN-NXKI
     Indication: Breast cancer
     Dosage: 345 MG, ONCE EVERY 3 WK (21 DAYS)
     Route: 042
     Dates: start: 20250103, end: 20250214

REACTIONS (3)
  - Interstitial lung disease [Unknown]
  - Cough [Unknown]
  - Rales [Unknown]

NARRATIVE: CASE EVENT DATE: 20250307
